FAERS Safety Report 7246253-6 (Version None)
Quarter: 2011Q1

REPORT INFORMATION
  Report Type: 
  Country: None (occurrence: None)
  Receive Date: 20110126
  Receipt Date: 20110125
  Transmission Date: 20110831
  Serious: Yes (Other)
  Sender: FDA-Public Use
  Company Number: US-ABBOTT-11P-163-0699493-00

PATIENT
  Sex: Male
  Weight: 74.002 kg

DRUGS (5)
  1. TERAZOSIN HCL [Concomitant]
     Indication: PROSTATIC DISORDER
     Route: 048
  2. CRESTOR [Concomitant]
     Indication: BLOOD CHOLESTEROL INCREASED
     Route: 048
  3. BENAZPRIL HCL [Concomitant]
     Indication: HYPERTENSION
     Route: 048
  4. LOVAZA [Concomitant]
     Indication: BLOOD CHOLESTEROL
     Route: 048
  5. NIASPAN [Suspect]
     Indication: HIGH DENSITY LIPOPROTEIN DECREASED
     Route: 048
     Dates: start: 20100901

REACTIONS (1)
  - MALIGNANT MELANOMA [None]
